FAERS Safety Report 7275416-9 (Version None)
Quarter: 2011Q1

REPORT INFORMATION
  Report Type: 
  Country: None (occurrence: None)
  Receive Date: 20110204
  Receipt Date: 20110127
  Transmission Date: 20110831
  Serious: Yes (Hospitalization)
  Sender: FDA-Public Use
  Company Number: PL-ELI_LILLY_AND_COMPANY-PL201101007059

PATIENT
  Sex: Male
  Weight: 103 kg

DRUGS (10)
  1. GEMCITABINE HYDROCHLORIDE [Suspect]
     Indication: NON-SMALL CELL LUNG CANCER
     Dosage: 2600 MG, UNK
     Dates: start: 20100803, end: 20101203
  2. CISPLATIN [Suspect]
     Dosage: 150 MG, UNK
     Dates: start: 20100803, end: 20101202
  3. MYDOCALM [Concomitant]
     Indication: ARTHRALGIA
     Dates: start: 20100927
  4. BISOPROLOL [Concomitant]
     Indication: HYPERTENSION
     Dates: start: 20070101
  5. INSULIN [Concomitant]
     Indication: DIABETES MELLITUS
     Dates: start: 20100823
  6. NECITUMUMAB (11F8) (LY3012211) [Suspect]
     Indication: NON-SMALL CELL LUNG CANCER
     Dosage: 800 MG, UNK
     Dates: start: 20100803, end: 20110120
  7. KETOPROFENO [Concomitant]
     Indication: ARTHRALGIA
     Dates: start: 20101013
  8. OMEPRAZOLE [Concomitant]
     Indication: ABDOMINAL PAIN UPPER
     Dates: start: 20101013
  9. PERINDOPRIL [Concomitant]
     Indication: HYPERTENSION
     Dates: start: 20070101
  10. HYDROCORTISYL TOPICAL [Concomitant]
     Indication: ACNE
     Dates: start: 20100830

REACTIONS (1)
  - PULMONARY EMBOLISM [None]
